FAERS Safety Report 15608014 (Version 1)
Quarter: 2018Q4

REPORT INFORMATION
  Report Type: Spontaneous
  Country: US (occurrence: US)
  Receive Date: 20181112
  Receipt Date: 20181112
  Transmission Date: 20190205
  Serious: Yes (Hospitalization)
  Sender: FDA-Public Use
  Company Number: None

PATIENT
  Age: 69 Year
  Sex: Female

DRUGS (14)
  1. BYSTOLIC TAB 10MG [Concomitant]
  2. BRIMONIDINE SOL 0.15 % [Concomitant]
  3. SILDENAFIL. [Suspect]
     Active Substance: SILDENAFIL
     Route: 048
     Dates: start: 20180117
  4. NOVOLOG MIX INJ 70/30 [Concomitant]
  5. CITALOPRAM TAB 20 MG [Concomitant]
  6. BUMETANIDE TAB 0.5 MG [Concomitant]
  7. CIRT-PHOS TAB 250 NEUT [Concomitant]
  8. FUROSEMIDE TAB 40 MG [Concomitant]
  9. RISEDRONATE TAB 15 MG [Concomitant]
  10. ATORVASTATIN TAB 40 MG [Concomitant]
     Active Substance: ATORVASTATIN
  11. VITAMIN D CAP 50000 UNITS [Concomitant]
  12. PANTOPRAZOLE TAB 40 MG [Concomitant]
  13. ALLOPURINOL 300 MG [Concomitant]
     Active Substance: ALLOPURINOL
  14. MAG OXIDE TAB 400 MG [Concomitant]

REACTIONS (2)
  - Fluid retention [None]
  - Pleural effusion [None]

NARRATIVE: CASE EVENT DATE: 20181001
